FAERS Safety Report 4766219-5 (Version None)
Quarter: 2005Q3

REPORT INFORMATION
  Report Type: 
  Country: None (occurrence: None)
  Receive Date: 20050909
  Receipt Date: 20050825
  Transmission Date: 20060218
  Serious: Yes (Hospitalization)
  Sender: FDA-Public Use
  Company Number: B0251074B

PATIENT
  Sex: 0

DRUGS (2)
  1. PAXIL [Suspect]
     Dosage: 20 MG/PER DAY
  2. VITAMIN K [Concomitant]

REACTIONS (21)
  - BRAIN SCAN ABNORMAL [None]
  - CEREBRAL ATROPHY [None]
  - CEREBRAL HAEMATOMA [None]
  - CEREBRAL HAEMORRHAGE NEONATAL [None]
  - CONVULSION NEONATAL [None]
  - DRUG EXPOSURE DURING PREGNANCY [None]
  - EYE MOVEMENT DISORDER [None]
  - FONTANELLE BULGING [None]
  - HYPOTONIA NEONATAL [None]
  - INTRACRANIAL PRESSURE INCREASED [None]
  - INTRAVENTRICULAR HAEMORRHAGE NEONATAL [None]
  - LETHARGY [None]
  - MOANING [None]
  - MOVEMENT DISORDER [None]
  - NEONATAL APNOEIC ATTACK [None]
  - NEONATAL DISORDER [None]
  - NERVOUS SYSTEM DISORDER [None]
  - PUPILS UNEQUAL [None]
  - RESPIRATORY DISORDER [None]
  - VENTRICULAR HYPERTROPHY [None]
  - VOMITING NEONATAL [None]
